FAERS Safety Report 14251830 (Version 5)
Quarter: 2018Q1

REPORT INFORMATION
  Report Type: Spontaneous
  Country: IT (occurrence: IT)
  Receive Date: 20171205
  Receipt Date: 20180321
  Transmission Date: 20180508
  Serious: Yes (Other)
  Sender: FDA-Public Use
  Company Number: IT-JNJFOC-20171201674

PATIENT
  Age: 37 Year
  Sex: Female
  Weight: 55 kg

DRUGS (3)
  1. MESAVANCOL [Concomitant]
     Active Substance: MESALAMINE
     Indication: COLITIS
     Route: 048
  2. REMICADE [Suspect]
     Active Substance: INFLIXIMAB
     Indication: COLITIS
     Route: 042
     Dates: start: 20171109, end: 20171123
  3. PENTACOL [Concomitant]
     Active Substance: MESALAMINE
     Indication: COLITIS
     Route: 048

REACTIONS (1)
  - Laryngospasm [Recovered/Resolved]

NARRATIVE: CASE EVENT DATE: 20171123
